FAERS Safety Report 6974550-8 (Version None)
Quarter: 2010Q3

REPORT INFORMATION
  Report Type: 
  Country: None (occurrence: None)
  Receive Date: 20100909
  Receipt Date: 20081211
  Transmission Date: 20110219
  Serious: No
  Sender: FDA-Public Use
  Company Number: US-WYE-H06551708

PATIENT
  Sex: Female
  Weight: 72.64 kg

DRUGS (5)
  1. PRISTIQ [Suspect]
     Indication: DEPRESSION
     Route: 048
     Dates: start: 20080501, end: 20080505
  2. PRISTIQ [Suspect]
     Route: 048
     Dates: start: 20080506
  3. DIOVAN [Concomitant]
  4. VALIUM [Concomitant]
  5. NORVASC [Concomitant]

REACTIONS (5)
  - CONDITION AGGRAVATED [None]
  - DYSPNOEA [None]
  - DYSURIA [None]
  - HYPERTENSION [None]
  - MICTURITION URGENCY [None]
